FAERS Safety Report 20814920 (Version 1)
Quarter: 2022Q2

REPORT INFORMATION
  Report Type: Spontaneous
  Country: US (occurrence: US)
  Receive Date: 20220511
  Receipt Date: 20220511
  Transmission Date: 20220721
  Serious: No
  Sender: FDA-Public Use
  Company Number: US-PFIZER INC-202101106066

PATIENT
  Age: 70 Year
  Sex: Female
  Weight: 65.32 kg

DRUGS (1)
  1. COLESTIPOL HYDROCHLORIDE [Suspect]
     Active Substance: COLESTIPOL HYDROCHLORIDE
     Indication: Blood cholesterol increased
     Dosage: 1 G, 2X/DAY (2 TABLETS TWICE A DAY)
     Route: 048

REACTIONS (3)
  - Product coating issue [Unknown]
  - Product use complaint [Unknown]
  - Dysphagia [Unknown]
